FAERS Safety Report 8104803-1 (Version None)
Quarter: 2012Q1

REPORT INFORMATION
  Report Type: 
  Country: None (occurrence: None)
  Receive Date: 20120130
  Receipt Date: 20120126
  Transmission Date: 20120608
  Serious: No
  Sender: FDA-Public Use
  Company Number: US-PFIZER INC-2012022456

PATIENT
  Sex: Female
  Weight: 45.351 kg

DRUGS (8)
  1. ZOLOFT [Suspect]
     Dosage: UNK
  2. NEXIUM [Concomitant]
     Indication: GASTRIC DISORDER
     Dosage: UNK
  3. NEURONTIN [Concomitant]
     Indication: MIGRAINE
     Dosage: UNK
  4. ZOLOFT [Suspect]
     Indication: DEPRESSION
     Dosage: 200 MG, 1X/DAY
     Route: 048
     Dates: start: 19900101
  5. LIPITOR [Concomitant]
     Indication: BLOOD CHOLESTEROL INCREASED
     Dosage: UNK
  6. CLONAZEPAM [Concomitant]
     Indication: SLEEP DISORDER
     Dosage: UNK
  7. SERTRALINE HYDROCHLORIDE [Suspect]
     Indication: DEPRESSION
     Dosage: 200 MG, 1X/DAY
     Route: 048
  8. VITAMIN D [Concomitant]
     Dosage: UNK

REACTIONS (3)
  - HYPERSENSITIVITY [None]
  - PRURITUS [None]
  - INSOMNIA [None]
